FAERS Safety Report 25765322 (Version 1)
Quarter: 2025Q3

REPORT INFORMATION
  Report Type: Spontaneous
  Country: BR (occurrence: BR)
  Receive Date: 20250905
  Receipt Date: 20250905
  Transmission Date: 20251021
  Serious: Yes (Other)
  Sender: SANDOZ
  Company Number: BR-002147023-NVSC2025BR128690

PATIENT
  Sex: Female

DRUGS (3)
  1. FULVESTRANT [Suspect]
     Active Substance: FULVESTRANT
     Indication: Product used for unknown indication
     Route: 030
  2. KISQALI [Suspect]
     Active Substance: RIBOCICLIB SUCCINATE
     Indication: Breast cancer
     Dosage: 3 DF, QD 3 DOSAGE FORM, QD (TAKE 3 TABLETS DAILY FOR 21 DAYS, IN EVERY 28-DAY CYCLE, FOR INDEFINITE
     Route: 048
     Dates: start: 20250729, end: 20250818
  3. KISQALI [Suspect]
     Active Substance: RIBOCICLIB SUCCINATE
     Dosage: 3 DF, QD 3 DOSAGE FORM, QD, THREE TABLETS PER DAY
     Route: 065
     Dates: start: 20250826

REACTIONS (9)
  - Arrhythmia [Unknown]
  - Condition aggravated [Unknown]
  - Concomitant disease aggravated [Recovered/Resolved]
  - Throat irritation [Recovered/Resolved]
  - Reflux gastritis [Recovered/Resolved]
  - Nausea [Recovered/Resolved]
  - Headache [Recovered/Resolved]
  - Fatigue [Recovered/Resolved]
  - Weight increased [Recovered/Resolved]

NARRATIVE: CASE EVENT DATE: 20250101
